FAERS Safety Report 5906771-7 (Version None)
Quarter: 2008Q3

REPORT INFORMATION
  Report Type: 
  Country: None (occurrence: None)
  Receive Date: 20080930
  Receipt Date: 20080915
  Transmission Date: 20090109
  Serious: Yes (Hospitalization)
  Sender: FDA-Public Use
  Company Number: 2008S1016855

PATIENT
  Age: 60 Year
  Sex: Female

DRUGS (2)
  1. CITALOPRAM HYDROBROMIDE [Suspect]
     Indication: DEPRESSION
     Dosage: 60 MG;, 40 MG;
  2. CITALOPRAM HYDROBROMIDE [Suspect]
     Indication: DISEASE RECURRENCE
     Dosage: 60 MG;, 40 MG;

REACTIONS (9)
  - ABDOMINAL PAIN [None]
  - ANHEDONIA [None]
  - ANXIETY [None]
  - COGNITIVE DISORDER [None]
  - DEPRESSIVE SYMPTOM [None]
  - EMOTIONAL DISORDER [None]
  - GASTROOESOPHAGEAL REFLUX DISEASE [None]
  - INAPPROPRIATE SCHEDULE OF DRUG ADMINISTRATION [None]
  - INSOMNIA [None]
